FAERS Safety Report 9646305 (Version 2)
Quarter: 2013Q4

REPORT INFORMATION
  Report Type: Spontaneous
  Country: IT (occurrence: IT)
  Receive Date: 20131025
  Receipt Date: 20131218
  Transmission Date: 20140711
  Serious: Yes (Hospitalization)
  Sender: FDA-Public Use
  Company Number: IT-MYLANLABS-2013S1023298

PATIENT
  Age: 81 Year
  Sex: Female

DRUGS (8)
  1. GABAPENTIN [Suspect]
     Indication: MUSCULOSKELETAL PAIN
     Route: 048
     Dates: start: 20130915, end: 20130921
  2. LEXIL [Suspect]
     Indication: ANXIETY
     Route: 048
     Dates: start: 20110921
  3. EUTIROX [Concomitant]
     Indication: PRODUCT USED FOR UNKNOWN INDICATION
     Dosage: 100 MCG TABLETS
  4. PANTORC [Concomitant]
     Indication: PRODUCT USED FOR UNKNOWN INDICATION
     Dosage: 40 MG GASTRORESISTANT TABLETS
  5. DILATREND [Concomitant]
     Indication: PRODUCT USED FOR UNKNOWN INDICATION
     Dosage: 25 MG TABLETS
  6. LEVOPRAID /01142501/ [Concomitant]
     Indication: PRODUCT USED FOR UNKNOWN INDICATION
  7. ELOPRAM /00582602/ [Concomitant]
     Indication: PRODUCT USED FOR UNKNOWN INDICATION
  8. CO-EFFERALGAN [Concomitant]
     Indication: PRODUCT USED FOR UNKNOWN INDICATION
     Dosage: 500 MG + 30 MG EFFERVESCENT TABLETS

REACTIONS (2)
  - Sopor [Recovered/Resolved]
  - Bradyphrenia [Recovered/Resolved]
